FAERS Safety Report 10046137 (Version 2)
Quarter: 2014Q2

REPORT INFORMATION
  Report Type: Spontaneous
  Country: US (occurrence: US)
  Receive Date: 20140331
  Receipt Date: 20140512
  Transmission Date: 20141212
  Serious: No
  Sender: FDA-Public Use
  Company Number: US-BIOGENIDEC-2014BI028523

PATIENT
  Age: 68 Year
  Sex: Female

DRUGS (9)
  1. TYSABRI [Suspect]
     Indication: MULTIPLE SCLEROSIS
     Route: 042
     Dates: start: 201301
  2. SOLU-MEDROL [Concomitant]
     Indication: INFLAMMATION
     Dates: start: 2002
  3. LISINOPRIL [Concomitant]
  4. PRAVASTATIN [Concomitant]
  5. METFORMIN [Concomitant]
  6. VITAMIN D [Concomitant]
  7. VITAMIN B [Concomitant]
  8. SYNTHROID [Concomitant]
  9. AMPYRA [Concomitant]
     Indication: MULTIPLE SCLEROSIS
     Dates: start: 201311

REACTIONS (7)
  - Memory impairment [Recovered/Resolved]
  - Balance disorder [Unknown]
  - Muscular weakness [Unknown]
  - Stress [Unknown]
  - Fall [Recovered/Resolved]
  - Multiple sclerosis relapse [Unknown]
  - Asthenia [Unknown]
